FAERS Safety Report 8158492-0 (Version None)
Quarter: 2012Q1

REPORT INFORMATION
  Report Type: 
  Country: None (occurrence: None)
  Receive Date: 20120223
  Receipt Date: 20120216
  Transmission Date: 20120608
  Serious: Yes (Other)
  Sender: FDA-Public Use
  Company Number: US-PFIZER INC-2012042723

PATIENT
  Sex: Female
  Weight: 78.912 kg

DRUGS (2)
  1. RAPAMUNE [Suspect]
     Indication: RENAL TRANSPLANT
     Dosage: 1 MG, 1X/DAY
     Route: 048
     Dates: start: 20120101, end: 20120101
  2. RAPAMUNE [Suspect]
     Dosage: 0.5 MG, 1X/DAY
     Route: 048
     Dates: start: 20120101, end: 20120209

REACTIONS (5)
  - JOINT SWELLING [None]
  - GAIT DISTURBANCE [None]
  - BRONCHITIS [None]
  - HYPERSENSITIVITY [None]
  - ERYTHEMA [None]
